FAERS Safety Report 6316307-7 (Version None)
Quarter: 2009Q3

REPORT INFORMATION
  Report Type: 
  Country: None (occurrence: None)
  Receive Date: 20090819
  Receipt Date: 20090819
  Transmission Date: 20100115
  Serious: Yes (Other)
  Sender: FDA-Public Use
  Company Number: None

PATIENT
  Sex: Female
  Weight: 72.5755 kg

DRUGS (2)
  1. ZOLOFT [Suspect]
     Indication: ANXIETY
     Dosage: I TABLET PER DAY PO
     Route: 048
     Dates: start: 20090804, end: 20090818
  2. ZOLOFT [Suspect]
     Indication: DEPRESSION
     Dosage: I TABLET PER DAY PO
     Route: 048
     Dates: start: 20090804, end: 20090818

REACTIONS (1)
  - GASTROOESOPHAGEAL REFLUX DISEASE [None]
